FAERS Safety Report 21757214 (Version 1)
Quarter: 2022Q4

REPORT INFORMATION
  Report Type: Report from Study
  Country: US (occurrence: US)
  Receive Date: 20221220
  Receipt Date: 20221220
  Transmission Date: 20230113
  Serious: Yes (Other)
  Sender: FDA-Public Use
  Company Number: US-ABBVIE-4204134

PATIENT
  Sex: Female

DRUGS (1)
  1. HUMIRA [Suspect]
     Active Substance: ADALIMUMAB
     Indication: Colitis ulcerative
     Route: 058

REACTIONS (9)
  - Epistaxis [Unknown]
  - Night sweats [Recovering/Resolving]
  - Constipation [Recovered/Resolved]
  - Hepatic steatosis [Unknown]
  - Back pain [Unknown]
  - Bladder disorder [Not Recovered/Not Resolved]
  - Sleep apnoea syndrome [Unknown]
  - Vision blurred [Not Recovered/Not Resolved]
  - Dry eye [Unknown]
